FAERS Safety Report 8063976-X (Version None)
Quarter: 2012Q1

REPORT INFORMATION
  Report Type: 
  Country: None (occurrence: None)
  Receive Date: 20120123
  Receipt Date: 20120118
  Transmission Date: 20120608
  Serious: Yes (Hospitalization)
  Sender: FDA-Public Use
  Company Number: PHEH2012US001021

PATIENT
  Sex: Female

DRUGS (2)
  1. ESTROGENS CONJUGATED [Suspect]
     Route: 062
  2. ESTRADERM [Suspect]
     Dosage: 0.01 MG, UNK
     Route: 062
     Dates: start: 19890101

REACTIONS (2)
  - INFLUENZA [None]
  - PALPITATIONS [None]
